FAERS Safety Report 10184090 (Version 1)
Quarter: 2014Q2

REPORT INFORMATION
  Report Type: Spontaneous
  Country: US (occurrence: US)
  Receive Date: 20140520
  Receipt Date: 20140520
  Transmission Date: 20141212
  Serious: No
  Sender: FDA-Public Use
  Company Number: US-ASTRAZENECA-2013SE67420

PATIENT
  Age: 34 Year
  Sex: Female

DRUGS (3)
  1. ENTOCORT [Suspect]
     Route: 048
     Dates: start: 2010
  2. ENTOCORT [Suspect]
     Route: 048
  3. CIMZIA [Suspect]
     Route: 065

REACTIONS (3)
  - Immune system disorder [Unknown]
  - Infection [Unknown]
  - Drug effect incomplete [Unknown]
